FAERS Safety Report 24015267 (Version 1)
Quarter: 2024Q2

REPORT INFORMATION
  Report Type: Report from Study
  Country: US (occurrence: US)
  Receive Date: 20240626
  Receipt Date: 20240626
  Transmission Date: 20240716
  Serious: Yes (Hospitalization, Other)
  Sender: FDA-Public Use
  Company Number: US-ABBVIE-5809280

PATIENT
  Age: 68 Year
  Sex: Female

DRUGS (1)
  1. HUMIRA [Suspect]
     Active Substance: ADALIMUMAB
     Indication: Colitis ulcerative
     Dosage: FORM STRENGTH:40 MILLIGRAM
     Route: 058
     Dates: start: 20231215, end: 20240601

REACTIONS (9)
  - Loss of consciousness [Unknown]
  - Gastroenteritis viral [Recovering/Resolving]
  - Gastrointestinal viral infection [Recovered/Resolved]
  - Diarrhoea [Unknown]
  - Asthenia [Unknown]
  - Fluid intake reduced [Unknown]
  - Hypophagia [Unknown]
  - Exposure to communicable disease [Recovered/Resolved]
  - Drug ineffective [Unknown]

NARRATIVE: CASE EVENT DATE: 20240517
